FAERS Safety Report 9286899 (Version 2)
Quarter: 2013Q2

REPORT INFORMATION
  Report Type: Spontaneous
  Country: DE (occurrence: None)
  Receive Date: 20130509
  Receipt Date: 20130521
  Transmission Date: 20140414
  Serious: Yes (Other)
  Sender: FDA-Public Use
  Company Number: 1305-592

PATIENT
  Sex: Male

DRUGS (2)
  1. EYLEA (AFLIBERCEPT) (INJECTION) (AFLIBERCEPT) [Suspect]
     Indication: MYOPIA
     Route: 031
  2. TRIAMCINOLONE [Suspect]
     Route: 031

REACTIONS (5)
  - Blindness [None]
  - Off label use [None]
  - Vitreous disorder [None]
  - Inflammation [None]
  - Drug interaction [None]
